FAERS Safety Report 5886682-6 (Version None)
Quarter: 2008Q3

REPORT INFORMATION
  Report Type: 
  Country: None (occurrence: None)
  Receive Date: 20080917
  Receipt Date: 20080910
  Transmission Date: 20090109
  Serious: Yes (Other)
  Sender: FDA-Public Use
  Company Number: PHBS2008CA05682

PATIENT
  Age: 47 Year
  Sex: Female

DRUGS (9)
  1. BUDESONIDE [Suspect]
     Indication: ASTHMA
     Dosage: 1600 UG, QD
  2. BUDESONIDE [Suspect]
     Dosage: 1200 UG, QD
  3. BUDESONIDE [Suspect]
     Dosage: 800 UG, QD
  4. BUDESONIDE [Suspect]
     Dosage: 1200 UG, QD
  5. FORMOTEROL FUMARATE [Suspect]
     Indication: ASTHMA
     Dosage: 24 UG, QD
  6. PREDNISONE TAB [Concomitant]
  7. AZITHROMYCIN [Concomitant]
     Dosage: 500 MG, QD
  8. AZITHROMYCIN [Concomitant]
     Dosage: 500 MG, QW
  9. MACROLIDES [Concomitant]

REACTIONS (7)
  - BRONCHITIS BACTERIAL [None]
  - CD4 LYMPHOCYTES DECREASED [None]
  - CHLAMYDIAL INFECTION [None]
  - COUGH [None]
  - LYMPHOCYTE COUNT DECREASED [None]
  - SPUTUM ABNORMAL [None]
  - WHEEZING [None]
